FAERS Safety Report 9441175 (Version 1)
Quarter: 2013Q3

REPORT INFORMATION
  Report Type: Spontaneous
  Country: US (occurrence: US)
  Receive Date: 20130805
  Receipt Date: 20130805
  Transmission Date: 20140515
  Serious: Yes (Other)
  Sender: FDA-Public Use
  Company Number: US-PFIZER INC-2013226664

PATIENT
  Sex: Male

DRUGS (1)
  1. FIBERCON [Suspect]
     Dosage: UNK
     Route: 048

REACTIONS (4)
  - Choking [Unknown]
  - Product size issue [Unknown]
  - Dysphagia [Unknown]
  - Foreign body [Unknown]
